FAERS Safety Report 7631635-0 (Version None)
Quarter: 2011Q3

REPORT INFORMATION
  Report Type: 
  Country: None (occurrence: None)
  Receive Date: 20110725
  Receipt Date: 20110131
  Transmission Date: 20111222
  Serious: No
  Sender: FDA-Public Use
  Company Number: US-BRISTOL-MYERS SQUIBB COMPANY-15519275

PATIENT
  Age: 78 Year
  Sex: Male

DRUGS (6)
  1. MULTI-VITAMINS [Concomitant]
  2. LIPITOR [Concomitant]
  3. AMOXICILLIN [Concomitant]
  4. FISH OIL [Concomitant]
  5. ASPIRIN [Concomitant]
  6. COUMADIN [Suspect]
     Dates: start: 20110101

REACTIONS (1)
  - FREQUENT BOWEL MOVEMENTS [None]
